FAERS Safety Report 6744435-0 (Version None)
Quarter: 2010Q2

REPORT INFORMATION
  Report Type: 
  Country: None (occurrence: None)
  Receive Date: 20100527
  Receipt Date: 20100517
  Transmission Date: 20101027
  Serious: Yes (Other)
  Sender: FDA-Public Use
  Company Number: US-PFIZER INC-2010014883

PATIENT
  Sex: Male

DRUGS (4)
  1. SUTENT [Suspect]
     Indication: METASTATIC RENAL CELL CARCINOMA
     Dosage: 37.5 MG, DAILY, 4 WEEKS ON/2WEEKS OFF
     Route: 048
     Dates: start: 20090908, end: 20091202
  2. SUTENT [Suspect]
     Dosage: 50 MG, 1X/DAY, 4 WEEKS ON/2WEEKS OFF
     Dates: start: 20091202, end: 20100413
  3. LISINOPRIL [Concomitant]
     Indication: HYPERTENSION
     Dosage: UNK
     Dates: start: 20060101
  4. NITROGLYCERIN [Concomitant]
     Indication: CHEST PAIN

REACTIONS (6)
  - BLOOD PRESSURE INCREASED [None]
  - CHEST PAIN [None]
  - FATIGUE [None]
  - FEELING COLD [None]
  - GASTRIC DISORDER [None]
  - GLOSSODYNIA [None]
